FAERS Safety Report 10220614 (Version 2)
Quarter: 2014Q3

REPORT INFORMATION
  Report Type: Spontaneous
  Country: FR (occurrence: FR)
  Receive Date: 20140606
  Receipt Date: 20140721
  Transmission Date: 20150326
  Serious: Yes (Other)
  Sender: FDA-Public Use
  Company Number: FR-BEH-2014042928

PATIENT
  Age: 63 Year
  Sex: Male

DRUGS (1)
  1. KANOKAD [Suspect]
     Active Substance: COAGULATION FACTOR VII HUMAN\COAGULATION FACTOR X HUMAN\FACTOR IX COMPLEX\PROTHROMBIN
     Indication: ANTICOAGULANT THERAPY

REACTIONS (6)
  - Antiphospholipid syndrome [Recovering/Resolving]
  - Haemorrhagic infarction [Recovering/Resolving]
  - Pain [Recovering/Resolving]
  - Inflammation [Recovering/Resolving]
  - Peripancreatic fluid collection [Recovering/Resolving]
  - Heparin-induced thrombocytopenia [Recovering/Resolving]
